FAERS Safety Report 14396428 (Version 1)
Quarter: 2018Q1

REPORT INFORMATION
  Report Type: Spontaneous
  Country: US (occurrence: US)
  Receive Date: 20180116
  Receipt Date: 20180116
  Transmission Date: 20180509
  Serious: No
  Sender: FDA-Public Use
  Company Number: US-ALLERGAN-1727428US

PATIENT
  Age: 60 Year
  Sex: Female
  Weight: 58.96 kg

DRUGS (4)
  1. BOTOX COSMETIC [Suspect]
     Active Substance: ONABOTULINUMTOXINA
     Indication: SKIN WRINKLING
     Dosage: 20 UNITS, SINGLE
     Route: 030
     Dates: start: 20170519, end: 20170519
  2. GARLIC                             /01570501/ [Concomitant]
     Active Substance: GARLIC
     Route: 048
  3. LISINOPRIL + HIDROCLOROTIAZIDA [Concomitant]
     Active Substance: HYDROCHLOROTHIAZIDE\LISINOPRIL
     Indication: HYPERTENSION
     Route: 048
  4. FISH OIL                           /00492901/ [Concomitant]
     Active Substance: COD LIVER OIL
     Route: 048

REACTIONS (2)
  - Trismus [Not Recovered/Not Resolved]
  - Facial paresis [Not Recovered/Not Resolved]

NARRATIVE: CASE EVENT DATE: 201705
